FAERS Safety Report 7013221-9 (Version None)
Quarter: 2010Q3

REPORT INFORMATION
  Report Type: 
  Country: None (occurrence: None)
  Receive Date: 20100909
  Receipt Date: 20100706
  Transmission Date: 20110219
  Serious: Yes (Hospitalization)
  Sender: FDA-Public Use
  Company Number: 2010SP037530

PATIENT
  Sex: Male

DRUGS (2)
  1. SAPHRIS [Suspect]
     Indication: ANXIETY DISORDER
     Dosage: SL
     Route: 060
  2. SEROQUEL (CON.) [Concomitant]

REACTIONS (1)
  - ANXIETY [None]
